FAERS Safety Report 24758593 (Version 1)
Quarter: 2024Q4

REPORT INFORMATION
  Report Type: Spontaneous
  Country: SK (occurrence: SK)
  Receive Date: 20241220
  Receipt Date: 20241220
  Transmission Date: 20250114
  Serious: Yes (Hospitalization, Other)
  Sender: ASTELLAS
  Company Number: SK-ASTELLAS-2024-AER-024838

PATIENT
  Age: 35 Year
  Sex: Male

DRUGS (27)
  1. TACROLIMUS [Interacting]
     Active Substance: TACROLIMUS
     Indication: Renal transplant
     Dosage: SINGLE DAILY DOSE OF 0.2 MG/KG (DAY ^-2)
     Route: 048
     Dates: start: 20231204, end: 20231204
  2. TACROLIMUS [Interacting]
     Active Substance: TACROLIMUS
     Dosage: 0.1 MG/KG (DAY ^-1)
     Route: 048
     Dates: start: 20231205, end: 20231205
  3. TACROLIMUS [Interacting]
     Active Substance: TACROLIMUS
     Dosage: ON DAY 9
     Route: 048
     Dates: start: 20231215, end: 20231215
  4. TACROLIMUS [Interacting]
     Active Substance: TACROLIMUS
     Dosage: ON DAY 11
     Route: 048
     Dates: start: 20231217, end: 20231217
  5. TACROLIMUS [Interacting]
     Active Substance: TACROLIMUS
     Dosage: 0.5 MG EVERY OTHER DAY
     Route: 048
     Dates: start: 20231221, end: 20240219
  6. TACROLIMUS [Interacting]
     Active Substance: TACROLIMUS
     Dosage: ON DAY 6 AND 7
     Route: 048
     Dates: start: 20231212, end: 20241213
  7. TACROLIMUS [Interacting]
     Active Substance: TACROLIMUS
     Dosage: 1 MG DAILY (D 73)
     Route: 048
     Dates: start: 20240219, end: 20240222
  8. TACROLIMUS [Interacting]
     Active Substance: TACROLIMUS
     Dosage: 2 MG (D 76)
     Route: 048
     Dates: start: 20240222, end: 20240224
  9. TACROLIMUS [Interacting]
     Active Substance: TACROLIMUS
     Dosage: 6 MG (D 78)
     Route: 048
     Dates: start: 20240224, end: 20240227
  10. TACROLIMUS [Interacting]
     Active Substance: TACROLIMUS
     Dosage: 6 MG (D 81)
     Route: 048
     Dates: start: 20240227, end: 20240302
  11. TACROLIMUS [Interacting]
     Active Substance: TACROLIMUS
     Dosage: 8 MG (D 85)
     Route: 048
     Dates: start: 20240302, end: 20240312
  12. TACROLIMUS [Interacting]
     Active Substance: TACROLIMUS
     Dosage: 8 MG (D 95)
     Route: 048
     Dates: start: 20240312
  13. LAMIVUDINE [Interacting]
     Active Substance: LAMIVUDINE
     Indication: HIV infection
     Route: 065
  14. LAMIVUDINE [Interacting]
     Active Substance: LAMIVUDINE
     Dosage: THERAPY WAS MODIFIED ON POSTOPERATIVE DAY 73
     Route: 065
     Dates: start: 202402
  15. DOLUTEGRAVIR [Interacting]
     Active Substance: DOLUTEGRAVIR
     Indication: HIV infection
     Dosage: 50MG
     Route: 065
     Dates: start: 201911
  16. DOLUTEGRAVIR [Interacting]
     Active Substance: DOLUTEGRAVIR
     Dosage: THERAPY WAS MODIFIED ON POSTOPERATIVE DAY 73
     Route: 065
     Dates: start: 202402
  17. DARUNAVIR [Interacting]
     Active Substance: DARUNAVIR
     Indication: HIV infection
     Dosage: 800MG/DAY
     Route: 065
     Dates: start: 201911
  18. RITONAVIR [Interacting]
     Active Substance: RITONAVIR
     Indication: HIV infection
     Dosage: 100MG/DAY
     Route: 065
     Dates: start: 201911
  19. RIFAMPIN [Interacting]
     Active Substance: RIFAMPIN
     Indication: HIV infection
     Dosage: ON DAY 4
     Route: 048
     Dates: start: 2023
  20. MYCOPHENOLIC ACID [Concomitant]
     Active Substance: MYCOPHENOLIC ACID
     Indication: Renal transplant
     Dosage: ORALLY 720 MG PER DAY
     Route: 048
     Dates: start: 202312
  21. MYCOPHENOLIC ACID [Concomitant]
     Active Substance: MYCOPHENOLIC ACID
     Dosage: 1440 MG/DAY ORALLY
     Route: 048
     Dates: start: 202312
  22. BASILIXIMAB [Concomitant]
     Active Substance: BASILIXIMAB
     Indication: Renal transplant
     Dosage: ON DAY 4
     Route: 042
     Dates: start: 20231210
  23. BASILIXIMAB [Concomitant]
     Active Substance: BASILIXIMAB
     Dosage: ON DAY 0
     Route: 042
     Dates: start: 20231206
  24. 6-methylprednisolon [Concomitant]
     Indication: Renal transplant
     Dosage: 500 MG OF 6-METHYLPREDNISOLON (6-MP) DURING SURGERY
     Route: 042
     Dates: start: 20231206
  25. 6-methylprednisolon [Concomitant]
     Route: 042
  26. PREDNISONE [Concomitant]
     Active Substance: PREDNISONE
     Indication: Renal transplant
     Dosage: 20MG/DAY ORALLY
     Route: 048
     Dates: start: 202312
  27. SULFAMETHOXAZOLE\TRIMETHOPRIM [Concomitant]
     Active Substance: SULFAMETHOXAZOLE\TRIMETHOPRIM
     Indication: Antifungal prophylaxis
     Route: 065

REACTIONS (7)
  - Toxicity to various agents [Unknown]
  - Lymphocele [Recovered/Resolved]
  - Transplant rejection [Recovering/Resolving]
  - Cytomegalovirus infection [Unknown]
  - Drug interaction [Unknown]
  - Drug interaction [Unknown]
  - Drug interaction [Unknown]

NARRATIVE: CASE EVENT DATE: 20231201
